FAERS Safety Report 4512725-8 (Version None)
Quarter: 2004Q4

REPORT INFORMATION
  Report Type: 
  Country: None (occurrence: None)
  Receive Date: 20040928
  Receipt Date: 20040618
  Transmission Date: 20050328
  Serious: No
  Sender: FDA-Public Use
  Company Number: 04P-163-0264319-00

PATIENT
  Sex: Female

DRUGS (6)
  1. HUMIRA [Suspect]
     Indication: RHEUMATOID ARTHRITIS
     Dosage: 40 MG, 1 IN 2 WK, SUBCUTANEOUS
     Route: 058
     Dates: start: 20040507
  2. QUININE [Suspect]
     Dosage: PER ORAL
     Route: 048
     Dates: start: 20040518, end: 20040609
  3. RANITIDINE HYDROCHLORIDE [Concomitant]
  4. CYCLOSPORINE [Concomitant]
  5. HYDROXYCHLOROQUINE PHOSPHATE [Concomitant]
  6. NAPROXEN [Concomitant]

REACTIONS (1)
  - URTICARIA [None]
